FAERS Safety Report 4449134-6 (Version None)
Quarter: 2004Q3

REPORT INFORMATION
  Report Type: 
  Country: None (occurrence: None)
  Receive Date: 20040910
  Receipt Date: 20040831
  Transmission Date: 20050211
  Serious: Yes (Hospitalization)
  Sender: FDA-Public Use
  Company Number: 140009USA

PATIENT
  Age: 59 Year
  Sex: Female

DRUGS (7)
  1. ADRUCIL [Suspect]
     Indication: BREAST CANCER
     Dosage: 950 MILLIGRAM INTRAVENOUS (NOS)
     Route: 042
     Dates: start: 20040416
  2. EPIRUBICIN [Suspect]
  3. CYCLOPHOSPHAMIDE [Suspect]
  4. (ABH) ATIVAN [Concomitant]
  5. BENADRYL [Concomitant]
  6. HALADOL [Concomitant]
  7. ZOFRAN [Concomitant]

REACTIONS (5)
  - CHILLS [None]
  - DEHYDRATION [None]
  - FEBRILE NEUTROPENIA [None]
  - LOBAR PNEUMONIA [None]
  - STOMATITIS [None]
